FAERS Safety Report 6376557-0 (Version None)
Quarter: 2009Q3

REPORT INFORMATION
  Report Type: 
  Country: None (occurrence: None)
  Receive Date: 20090925
  Receipt Date: 20090915
  Transmission Date: 20100115
  Serious: Yes (Other)
  Sender: FDA-Public Use
  Company Number: US-PFIZER INC-2009270096

PATIENT
  Sex: Female
  Weight: 54 kg

DRUGS (1)
  1. DEPO-PROVERA [Suspect]
     Indication: CONTRACEPTION

REACTIONS (11)
  - ACNE [None]
  - ALOPECIA [None]
  - ANXIETY [None]
  - BONE PAIN [None]
  - HYPERHIDROSIS [None]
  - HYPOAESTHESIA [None]
  - MENOPAUSE [None]
  - MUSCLE DISORDER [None]
  - NERVOUSNESS [None]
  - OCULAR ICTERUS [None]
  - PAIN [None]
